FAERS Safety Report 21280748 (Version 3)
Quarter: 2022Q3

REPORT INFORMATION
  Report Type: Spontaneous
  Country: US (occurrence: US)
  Receive Date: 20220901
  Receipt Date: 20220908
  Transmission Date: 20221027
  Serious: No
  Sender: FDA-Public Use
  Company Number: US-PFIZER INC-202201110475

PATIENT
  Age: 29 Year
  Sex: Male
  Weight: 98.43 kg

DRUGS (2)
  1. PAXLOVID [Suspect]
     Active Substance: NIRMATRELVIR\RITONAVIR
     Indication: COVID-19 treatment
     Dosage: [PF-07321332 300 MG]/[RITONAVIR 100 MG]; 2X/DAY
     Route: 048
     Dates: start: 20220830
  2. LACTOSE MONOHYDRATE [Suspect]
     Active Substance: LACTOSE MONOHYDRATE
     Dosage: UNK

REACTIONS (3)
  - Flatulence [Recovering/Resolving]
  - Eructation [Unknown]
  - Reaction to excipient [Recovering/Resolving]

NARRATIVE: CASE EVENT DATE: 20220831
